FAERS Safety Report 16947418 (Version 6)
Quarter: 2020Q2

REPORT INFORMATION
  Report Type: Report from Study
  Country: None (occurrence: KR)
  Receive Date: 20191022
  Receipt Date: 20200420
  Transmission Date: 20200713
  Serious: Yes (Other)
  Sender: FDA-Public Use
  Company Number: KR-ABBVIE-19P-090-2877391-00

PATIENT
  Age: 76 Year
  Sex: Male
  Weight: 63 kg

DRUGS (13)
  1. DUODOPA [Suspect]
     Active Substance: CARBIDOPA\LEVODOPA
     Route: 050
     Dates: start: 20190808
  2. SEROQUEL [Concomitant]
     Active Substance: QUETIAPINE FUMARATE
     Indication: PARKINSON^S DISEASE
     Route: 048
     Dates: start: 20150903
  3. STALEVO [Suspect]
     Active Substance: CARBIDOPA\ENTACAPONE\LEVODOPA
     Indication: PARKINSON^S DISEASE
     Route: 048
     Dates: start: 20190130, end: 20190729
  4. PHAZYME [Concomitant]
     Active Substance: DIMETHICONE 410
     Indication: DECREASED APPETITE
     Route: 048
     Dates: start: 20181211
  5. MGO [Concomitant]
     Active Substance: MAGNESIUM OXIDE
     Indication: CONSTIPATION
     Route: 048
     Dates: start: 20181217
  6. DULCOLAX NOS [Concomitant]
     Active Substance: BISACODYL OR DOCUSATE SODIUM
     Indication: CONSTIPATION
     Route: 054
     Dates: start: 20180205
  7. SEROQUEL [Concomitant]
     Active Substance: QUETIAPINE FUMARATE
     Indication: SEDATIVE THERAPY
  8. DUODOPA [Suspect]
     Active Substance: CARBIDOPA\LEVODOPA
     Indication: PARKINSON^S DISEASE
     Dosage: 2.7 ML/HR
     Route: 050
     Dates: start: 20190801, end: 20190804
  9. MUCOPECT [Concomitant]
     Indication: PROPHYLAXIS
     Route: 048
     Dates: start: 20160910
  10. DIOVAN [Concomitant]
     Active Substance: VALSARTAN
     Indication: INFECTION PROPHYLAXIS
     Route: 048
     Dates: start: 20160810
  11. MADOPAR [Suspect]
     Active Substance: BENSERAZIDE HYDROCHLORIDE\LEVODOPA
     Indication: PARKINSON^S DISEASE
     Route: 048
     Dates: start: 20190319, end: 20190728
  12. NORVASC [Concomitant]
     Active Substance: AMLODIPINE BESYLATE
     Indication: HYPERTENSION
     Route: 048
     Dates: start: 20161205
  13. ASIMA [Concomitant]
     Active Substance: DOXOFYLLINE
     Indication: PROPHYLAXIS
     Route: 048
     Dates: start: 20181211

REACTIONS (1)
  - Peritonitis [Recovered/Resolved]

NARRATIVE: CASE EVENT DATE: 20190803
